FAERS Safety Report 6695804-9 (Version None)
Quarter: 2010Q2

REPORT INFORMATION
  Report Type: 
  Country: None (occurrence: None)
  Receive Date: 20100423
  Receipt Date: 20100423
  Transmission Date: 20101027
  Serious: No
  Sender: FDA-Public Use
  Company Number: None

PATIENT
  Age: 72 Year
  Sex: Female
  Weight: 101.1521 kg

DRUGS (1)
  1. ALLOPURINOL [Suspect]
     Indication: GOUT
     Dosage: 300 MG DAILY PO
     Route: 048
     Dates: start: 20070801, end: 20071031

REACTIONS (8)
  - BONE MARROW FAILURE [None]
  - DRUG LEVEL INCREASED [None]
  - FALL [None]
  - GASTROINTESTINAL HAEMORRHAGE [None]
  - GOUT [None]
  - IMMUNOSUPPRESSION [None]
  - RENAL FAILURE ACUTE [None]
  - URINARY TRACT INFECTION [None]
